FAERS Safety Report 11837817 (Version 1)
Quarter: 2015Q4

REPORT INFORMATION
  Report Type: Spontaneous
  Country: US (occurrence: US)
  Receive Date: 20151215
  Receipt Date: 20151215
  Transmission Date: 20160305
  Serious: No
  Sender: FDA-Public Use
  Company Number: US-009507513-2004-12-1009

PATIENT
  Sex: Female

DRUGS (2)
  1. REBETOL [Suspect]
     Active Substance: RIBAVIRIN
     Indication: PRODUCT USED FOR UNKNOWN INDICATION
     Dosage: DOSE: UNKNOWN, DURATION: CONTINUING
     Route: 048
     Dates: start: 200310
  2. INTRON A [Suspect]
     Active Substance: INTERFERON ALFA-2B
     Indication: PRODUCT USED FOR UNKNOWN INDICATION
     Dosage: DOSE: UNKNOWN, DURATION: CONTINUING
     Route: 058
     Dates: start: 200310

REACTIONS (2)
  - Exposure during pregnancy [Recovered/Resolved]
  - No adverse event [Recovered/Resolved]

NARRATIVE: CASE EVENT DATE: 200310
